FAERS Safety Report 5319978-7 (Version None)
Quarter: 2007Q2

REPORT INFORMATION
  Report Type: 
  Country: None (occurrence: None)
  Receive Date: 20070509
  Receipt Date: 20070503
  Transmission Date: 20071010
  Serious: Yes (Death, Other)
  Sender: FDA-Public Use
  Company Number: GB-ELI_LILLY_AND_COMPANY-GB200705000614

PATIENT
  Age: 62 Year
  Sex: Female
  Weight: 70 kg

DRUGS (1)
  1. XIGRIS [Suspect]
     Route: 042
     Dates: start: 20070422, end: 20070425

REACTIONS (1)
  - CEREBRAL HAEMORRHAGE [None]
